FAERS Safety Report 8578175-2 (Version None)
Quarter: 2012Q3

REPORT INFORMATION
  Report Type: 
  Country: None (occurrence: None)
  Receive Date: 20120808
  Receipt Date: 20120803
  Transmission Date: 20120928
  Serious: No
  Sender: FDA-Public Use
  Company Number: US-PFIZER INC-2012189421

PATIENT
  Age: 24 Year
  Sex: Male

DRUGS (1)
  1. ZYVOX [Suspect]
     Dosage: UNK

REACTIONS (3)
  - BURNING SENSATION [None]
  - RASH GENERALISED [None]
  - ALOPECIA [None]
